FAERS Safety Report 9893199 (Version 1)
Quarter: 2014Q1

REPORT INFORMATION
  Report Type: Report from Study
  Country: US (occurrence: US)
  Receive Date: 20140213
  Receipt Date: 20140213
  Transmission Date: 20141002
  Serious: Yes (Other)
  Sender: FDA-Public Use
  Company Number: US-US-EMD SERONO, INC.-7268286

PATIENT
  Sex: Male

DRUGS (2)
  1. REBIF [Suspect]
     Indication: MULTIPLE SCLEROSIS
     Dates: start: 20050717
  2. REBIF [Suspect]
     Dates: end: 20120717

REACTIONS (3)
  - Heart rate irregular [Recovering/Resolving]
  - Tremor [Recovering/Resolving]
  - Rash [Recovering/Resolving]
